FAERS Safety Report 19403330 (Version 1)
Quarter: 2021Q2

REPORT INFORMATION
  Report Type: Spontaneous
  Country: US (occurrence: US)
  Receive Date: 20210610
  Receipt Date: 20210610
  Transmission Date: 20210717
  Serious: No
  Sender: FDA-Public Use
  Company Number: US-GALDERMA-US2020024013

PATIENT
  Age: 8 Year
  Sex: Male

DRUGS (3)
  1. CLOBETASOL PROPIONATE (CLOBETASOL PROPIONATE) [Suspect]
     Active Substance: CLOBETASOL PROPIONATE
     Indication: ALOPECIA AREATA
     Dosage: 0.05%
     Route: 065
  2. TOFACITINIB [Concomitant]
     Active Substance: TOFACITINIB
     Indication: ALOPECIA AREATA
     Dosage: 5 MG
     Route: 065
  3. KENALOG [Concomitant]
     Active Substance: TRIAMCINOLONE ACETONIDE
     Indication: ALOPECIA AREATA
     Dosage: 2.5MG/ML

REACTIONS (3)
  - Alopecia [Recovered/Resolved]
  - Intentional product use issue [Recovered/Resolved]
  - Madarosis [Recovered/Resolved]
